FAERS Safety Report 23801702 (Version 1)
Quarter: 2024Q2

REPORT INFORMATION
  Report Type: Spontaneous
  Country: US (occurrence: US)
  Receive Date: 20240501
  Receipt Date: 20240501
  Transmission Date: 20240716
  Serious: No
  Sender: FDA-Public Use
  Company Number: US-OPELLA-2024OHG013631

PATIENT

DRUGS (1)
  1. ALLEGRA ALLERGY [Suspect]
     Active Substance: FEXOFENADINE HYDROCHLORIDE
     Indication: Allergy to plants
     Dosage: BATCH NUMBER: UNKNOWN AND EXPIRY DATE: 02-MAR-2025
     Dates: start: 202404

REACTIONS (3)
  - Rhinorrhoea [Unknown]
  - Sneezing [Unknown]
  - Cough [Unknown]

NARRATIVE: CASE EVENT DATE: 20240401
